FAERS Safety Report 8579633 (Version 3)
Quarter: 2014Q1

REPORT INFORMATION
  Report Type: Spontaneous
  Country: US (occurrence: US)
  Receive Date: 20120525
  Receipt Date: 20140318
  Transmission Date: 20141002
  Serious: No
  Sender: FDA-Public Use
  Company Number: US-PFIZER INC-2012122290

PATIENT
  Age: 66 Year
  Sex: Female

DRUGS (10)
  1. INLYTA [Suspect]
     Indication: RENAL CELL CARCINOMA STAGE IV
     Dosage: 5 MG, ONE TABLET EVERY 12 HOURS
     Dates: start: 20120403
  2. INLYTA [Suspect]
     Dosage: 3 MG, 2X/DAY
     Dates: start: 201204
  3. INLYTA [Suspect]
     Dosage: 5 MG, 2X/DAY
     Route: 048
     Dates: start: 20120703
  4. INLYTA [Suspect]
     Dosage: 3 MG, 2X/DAY
     Route: 048
  5. ANASTROZOLE [Concomitant]
     Dosage: 1 MG, UNK
     Dates: start: 2010
  6. LIPITOR [Concomitant]
     Dosage: 10 MG, UNK
  7. LEVOTHYROXINE [Concomitant]
     Dosage: 150, UNK
  8. AMLODIPINE [Concomitant]
     Dosage: 10 MG, UNK
  9. DOXAZOSIN [Concomitant]
     Dosage: 2 MG, UNK
  10. GLIMEPIRIDE [Concomitant]
     Dosage: UNK

REACTIONS (3)
  - Arthralgia [Unknown]
  - Diarrhoea [Unknown]
  - Dehydration [Unknown]
